FAERS Safety Report 8987863 (Version 2)
Quarter: 2013Q1

REPORT INFORMATION
  Report Type: Spontaneous
  Country: US (occurrence: US)
  Receive Date: 20121227
  Receipt Date: 20130301
  Transmission Date: 20140127
  Serious: Yes (Hospitalization)
  Sender: FDA-Public Use
  Company Number: US-GLAXOSMITHKLINE-A1006467A

PATIENT
  Age: 59 Year
  Sex: Male

DRUGS (6)
  1. JALYN [Suspect]
     Indication: DYSURIA
     Dosage: 1CAP SINGLE DOSE
     Route: 048
     Dates: start: 20121208, end: 20121208
  2. FUROSEMIDE [Concomitant]
  3. RAMIPRIL [Concomitant]
  4. METOPROLOL [Concomitant]
  5. ASPIRIN [Concomitant]
  6. LEVOCETIRIZINE [Concomitant]

REACTIONS (5)
  - Loss of consciousness [Recovered/Resolved]
  - Syncope [Recovered/Resolved]
  - Hyperhidrosis [Recovered/Resolved]
  - Flatulence [Recovered/Resolved]
  - Eructation [Recovered/Resolved]
